FAERS Safety Report 13557571 (Version 1)
Quarter: 2017Q2

REPORT INFORMATION
  Report Type: Spontaneous
  Country: US (occurrence: US)
  Receive Date: 20170517
  Receipt Date: 20170517
  Transmission Date: 20170830
  Serious: No
  Sender: FDA-Public Use
  Company Number: None

PATIENT
  Age: 48 Year
  Sex: Female
  Weight: 58.5 kg

DRUGS (6)
  1. EQUATE ALLERGY RELIEF (CETIRIZINE HYDROCHLORIDE) [Suspect]
     Active Substance: CETIRIZINE HYDROCHLORIDE
     Indication: SEASONAL ALLERGY
     Dosage: ?          QUANTITY:.5 TABLET(S);?
     Route: 048
  2. CALCIUM SUPPLEMENT [Concomitant]
     Active Substance: CALCIUM
  3. FOLATE SUPPLEMENT (FOLATE SUPPLEMENT) [Concomitant]
     Active Substance: FOLATE SODIUM
  4. WOMEN^S FORMULA MULTIVITAMIN [Concomitant]
  5. RETIN-A-MICROGEL [Concomitant]
  6. FISH OIL SUPPLEMENT [Concomitant]
     Active Substance: FISH OIL

REACTIONS (1)
  - Urticaria [None]

NARRATIVE: CASE EVENT DATE: 20170505
